FAERS Safety Report 8489124-X (Version None)
Quarter: 2012Q3

REPORT INFORMATION
  Report Type: 
  Country: None (occurrence: None)
  Receive Date: 20120705
  Receipt Date: 20120621
  Transmission Date: 20120928
  Serious: No
  Sender: FDA-Public Use
  Company Number: US-ASTRAZENECA-2009UW07015

PATIENT
  Age: 68 Year
  Sex: Female
  Weight: 83 kg

DRUGS (16)
  1. CRESTOR [Suspect]
     Route: 048
  2. VIOXX [Concomitant]
  3. AMOXICILLIN [Concomitant]
  4. TRICOR [Concomitant]
  5. NAPROSYN [Concomitant]
  6. SYMBICORT [Suspect]
     Indication: ASTHMA
     Dosage: 160/4.5 UG 2 PUFFS IN AM AND 2 PUFFS IN PM
     Route: 055
     Dates: end: 20090101
  7. DAYPRO [Concomitant]
  8. PRILOSEC [Suspect]
     Indication: GASTROOESOPHAGEAL REFLUX DISEASE
     Dosage: TWO TIMES A DAY
     Route: 048
     Dates: start: 20000101
  9. LIPITOR [Concomitant]
  10. PREMARIN [Concomitant]
  11. ANTICHOLINERGIC DRUGS [Concomitant]
  12. PRILOSEC [Suspect]
     Indication: OESOPHAGITIS
     Dosage: TWO TIMES A DAY
     Route: 048
     Dates: start: 20000101
  13. SPIRIVA [Concomitant]
  14. LEVOTHYROXINE SODIUM [Concomitant]
  15. SYMBICORT [Suspect]
     Dosage: 160/4.5 UG ONE PUFF IN AM AND ONE PUFF IN PM
     Route: 055
     Dates: start: 20090201
  16. ASMANEX TWISTHALER [Concomitant]

REACTIONS (16)
  - CONCUSSION [None]
  - BLOOD CREATINE PHOSPHOKINASE INCREASED [None]
  - INSOMNIA [None]
  - DRUG INEFFECTIVE [None]
  - SINUSITIS [None]
  - ANAEMIA VITAMIN B12 DEFICIENCY [None]
  - ASTHENIA [None]
  - MUSCULAR WEAKNESS [None]
  - MYALGIA [None]
  - MUSCLE SPASMS [None]
  - LARYNGITIS [None]
  - THYROID MASS [None]
  - DYSPHONIA [None]
  - LETHARGY [None]
  - MUSCULOSKELETAL STIFFNESS [None]
  - HEPATIC STEATOSIS [None]
